FAERS Safety Report 5166969-5 (Version None)
Quarter: 2006Q4

REPORT INFORMATION
  Report Type: 
  Country: None (occurrence: None)
  Receive Date: 20061207
  Receipt Date: 20060925
  Transmission Date: 20070319
  Serious: Yes (Other)
  Sender: FDA-Public Use
  Company Number: 2006CG01576

PATIENT
  Age: 766 Month
  Sex: Male
  Weight: 65 kg

DRUGS (6)
  1. SYMBICORT [Suspect]
     Indication: ASTHMA
     Dosage: 160/4.5 ?G, ONE INHALATION BID
     Route: 055
     Dates: start: 20020101, end: 20060401
  2. SYMBICORT [Suspect]
     Dosage: 160/4.5 ?G, ONE INHALATION BID
     Route: 055
     Dates: start: 20060501
  3. NIVAQUINE [Suspect]
     Indication: LUPUS-LIKE SYNDROME
     Dosage: TWO TABLETS PER DAY DURING SUMMER, ONE TABLET PER DAY DURING WINTER
     Route: 048
     Dates: start: 20041001, end: 20060701
  4. PULMICORT [Concomitant]
     Indication: ASTHMA
     Route: 055
     Dates: start: 19920101, end: 20020101
  5. BRICANYL [Concomitant]
     Indication: ASTHMA
     Dates: start: 19920101, end: 20020101
  6. BECLORHINOL [Concomitant]
     Indication: RHINITIS
     Dates: start: 20000101

REACTIONS (1)
  - LUPUS-LIKE SYNDROME [None]
